FAERS Safety Report 10959329 (Version 7)
Quarter: 2018Q3

REPORT INFORMATION
  Report Type: Spontaneous
  Country: CA (occurrence: CA)
  Receive Date: 20150327
  Receipt Date: 20180928
  Transmission Date: 20181010
  Serious: Yes (Hospitalization)
  Sender: FDA-Public Use
  Company Number: CA-ROCHE-1556971

PATIENT
  Age: 64 Year
  Sex: Female

DRUGS (7)
  1. XOLAIR [Suspect]
     Active Substance: OMALIZUMAB
     Route: 058
     Dates: start: 20180823
  2. SPIRIVA [Concomitant]
     Active Substance: TIOTROPIUM BROMIDE MONOHYDRATE
     Indication: PRODUCT USED FOR UNKNOWN INDICATION
     Route: 065
  3. XOLAIR [Suspect]
     Active Substance: OMALIZUMAB
     Indication: ASTHMA
     Route: 058
     Dates: start: 20140729
  4. XOLAIR [Suspect]
     Active Substance: OMALIZUMAB
     Route: 058
     Dates: start: 20180724
  5. ADVAIR HFA [Concomitant]
     Active Substance: FLUTICASONE PROPIONATE\SALMETEROL XINAFOATE
     Indication: PRODUCT USED FOR UNKNOWN INDICATION
     Route: 065
  6. XOLAIR [Suspect]
     Active Substance: OMALIZUMAB
     Route: 058
     Dates: start: 201608
  7. SALBUTAMOL [Concomitant]
     Active Substance: ALBUTEROL
     Indication: PRODUCT USED FOR UNKNOWN INDICATION
     Dosage: NEBULE
     Route: 065

REACTIONS (18)
  - Bronchitis [Recovering/Resolving]
  - Mobility decreased [Unknown]
  - Malaise [Unknown]
  - Arthritis [Unknown]
  - Ear pain [Unknown]
  - Fear of death [Unknown]
  - Urinary tract infection [Unknown]
  - Lung disorder [Unknown]
  - Mental disorder [Unknown]
  - Inflammation [Unknown]
  - Ear infection [Unknown]
  - Dizziness [Unknown]
  - Parkinson^s disease [Unknown]
  - Musculoskeletal pain [Unknown]
  - Cough [Unknown]
  - Bone disorder [Unknown]
  - Headache [Unknown]
  - Pain [Recovering/Resolving]

NARRATIVE: CASE EVENT DATE: 201602
